FAERS Safety Report 13947836 (Version 9)
Quarter: 2019Q1

REPORT INFORMATION
  Report Type: Report from Study
  Country: CA (occurrence: CA)
  Receive Date: 20170908
  Receipt Date: 20190313
  Transmission Date: 20190417
  Serious: Yes (Hospitalization, Other)
  Sender: FDA-Public Use
  Company Number: CA-BRISTOL-MYERS SQUIBB COMPANY-BMS-2017-078686

PATIENT
  Age: 73 Year
  Sex: Female

DRUGS (1)
  1. ABATACEPT [Suspect]
     Active Substance: ABATACEPT
     Indication: RHEUMATOID ARTHRITIS
     Dosage: 1000 MG, Q4WK
     Route: 042
     Dates: start: 20100119

REACTIONS (12)
  - Cerebrovascular accident [Recovering/Resolving]
  - Cerebral thrombosis [Unknown]
  - Pneumonia [Recovered/Resolved]
  - Fall [Unknown]
  - Urinary tract infection [Recovered/Resolved]
  - Sjogren^s syndrome [Unknown]
  - Neck mass [Unknown]
  - Tooth disorder [Recovered/Resolved]
  - Brain contusion [Not Recovered/Not Resolved]
  - Head injury [Unknown]
  - Tooth abscess [Recovered/Resolved]
  - Infection [Unknown]

NARRATIVE: CASE EVENT DATE: 20170906
